FAERS Safety Report 20938071 (Version 1)
Quarter: 2022Q2

REPORT INFORMATION
  Report Type: Spontaneous
  Country: US (occurrence: None)
  Receive Date: 20220608
  Receipt Date: 20220608
  Transmission Date: 20220721
  Serious: Yes (Other)
  Sender: FDA-Public Use
  Company Number: None

PATIENT
  Age: 75 Year
  Sex: Female

DRUGS (3)
  1. AMBRISENTAN [Suspect]
     Active Substance: AMBRISENTAN
     Indication: Pulmonary arterial hypertension
     Dosage: FREQUENCY : DAILY;?
     Route: 048
  2. SILDENAFIL [Concomitant]
     Active Substance: SILDENAFIL
  3. AMIODARONE [Concomitant]
     Active Substance: AMIODARONE

REACTIONS (10)
  - Probiotic therapy [None]
  - Blood parathyroid hormone increased [None]
  - Adenoma benign [None]
  - Weight increased [None]
  - Rash [None]
  - Iron deficiency anaemia [None]
  - Atrial fibrillation [None]
  - Chronic kidney disease [None]
  - Thyroid mass [None]
  - Oedema peripheral [None]

NARRATIVE: CASE EVENT DATE: 20220608
